FAERS Safety Report 10169201 (Version 1)
Quarter: 2014Q2

REPORT INFORMATION
  Report Type: Spontaneous
  Country: US (occurrence: US)
  Receive Date: 20140513
  Receipt Date: 20140513
  Transmission Date: 20141212
  Serious: Yes (Life-Threatening, Hospitalization, Other)
  Sender: FDA-Public Use
  Company Number: US-ELI_LILLY_AND_COMPANY-US201405002240

PATIENT
  Age: 0 Day
  Sex: Female

DRUGS (2)
  1. PROZAC [Suspect]
     Route: 064
  2. PROZAC [Suspect]
     Route: 064

REACTIONS (15)
  - Depressed level of consciousness [Unknown]
  - Wheezing [Unknown]
  - Hypopnoea [Unknown]
  - Congenital cardiovascular anomaly [Unknown]
  - Transposition of the great vessels [Unknown]
  - Scar [Unknown]
  - Arterial stenosis [Unknown]
  - Cyanosis [Unknown]
  - Loss of consciousness [Unknown]
  - Apnoeic attack [Unknown]
  - Autism [Unknown]
  - Premature baby [Unknown]
  - Exercise tolerance decreased [Unknown]
  - Attention deficit/hyperactivity disorder [Unknown]
  - Foetal exposure during pregnancy [Unknown]
